FAERS Safety Report 8263463-X (Version None)
Quarter: 2012Q2

REPORT INFORMATION
  Report Type: 
  Country: None (occurrence: None)
  Receive Date: 20120405
  Receipt Date: 20120329
  Transmission Date: 20120825
  Serious: Yes (Hospitalization)
  Sender: FDA-Public Use
  Company Number: US-ABBOTT-12P-163-0920095-00

PATIENT
  Sex: Female
  Weight: 124.85 kg

DRUGS (9)
  1. FOLIC ACID [Concomitant]
     Indication: VITAMIN SUPPLEMENTATION
  2. LEVEMIR [Concomitant]
     Indication: DIABETES MELLITUS
  3. METHOTREXATE [Concomitant]
     Indication: RHEUMATOID ARTHRITIS
  4. HUMIRA [Suspect]
     Indication: PSORIASIS
  5. CARVEDILOL [Concomitant]
     Indication: HYPERTENSION
  6. ISOSORBIDE DINITRATE [Concomitant]
     Indication: HYPERTENSION
  7. UNNAMED MEDICATION [Concomitant]
     Indication: HYPERTENSION
  8. METHOTREXATE [Concomitant]
     Indication: PSORIASIS
  9. UNNAMED MEDICATION [Concomitant]
     Indication: DIABETES MELLITUS

REACTIONS (11)
  - SCIATICA [None]
  - PSORIASIS [None]
  - RASH PAPULAR [None]
  - SKIN PLAQUE [None]
  - THROMBOSIS [None]
  - INAPPROPRIATE SCHEDULE OF DRUG ADMINISTRATION [None]
  - OEDEMA PERIPHERAL [None]
  - OSTEOARTHRITIS [None]
  - PAIN OF SKIN [None]
  - PULMONARY EMBOLISM [None]
  - GAIT DISTURBANCE [None]
